FAERS Safety Report 7150455-7 (Version None)
Quarter: 2010Q4

REPORT INFORMATION
  Report Type: 
  Country: None (occurrence: None)
  Receive Date: 20101210
  Receipt Date: 20101129
  Transmission Date: 20110411
  Serious: Yes (Other)
  Sender: FDA-Public Use
  Company Number: PHHY2010GR81024

PATIENT
  Sex: Female

DRUGS (1)
  1. ACLASTA [Suspect]
     Dosage: 5 MG

REACTIONS (4)
  - ANGINA PECTORIS [None]
  - BONE PAIN [None]
  - JOINT SWELLING [None]
  - PYREXIA [None]
